FAERS Safety Report 6138601-5 (Version None)
Quarter: 2009Q1

REPORT INFORMATION
  Report Type: 
  Country: None (occurrence: None)
  Receive Date: 20090327
  Receipt Date: 20090305
  Transmission Date: 20090719
  Serious: Yes (Hospitalization)
  Sender: FDA-Public Use
  Company Number: GB-DEXPHARM-20081423

PATIENT
  Age: 47 Year
  Sex: Female

DRUGS (4)
  1. DICLOFENAC [Suspect]
     Dosage: 75 MG MILLIGRAM(S), ORAL 2 IN 1 DAY
     Route: 048
     Dates: start: 19980101, end: 20081121
  2. ASPIRIN [Suspect]
     Indication: ACUTE CORONARY SYNDROME
     Dosage: 300 MG MILLIGRAM(S) ORAL
     Route: 048
     Dates: start: 20081121, end: 20081122
  3. AMITRIPTLINE HYDROCHLORIDE TAB [Suspect]
     Dosage: 20 MG MILLIGRAM(S), ORAL 1 IN 1 DAY
     Route: 048
     Dates: start: 19980101
  4. OMEPRAZOLE [Suspect]
     Dosage: 20 MG MILLIGRAM(S), ORAL 1 IN 1 DAY
     Route: 048

REACTIONS (1)
  - UPPER GASTROINTESTINAL HAEMORRHAGE [None]
